FAERS Safety Report 19281710 (Version 1)
Quarter: 2021Q2

REPORT INFORMATION
  Report Type: Spontaneous
  Country: IT (occurrence: IT)
  Receive Date: 20210520
  Receipt Date: 20210520
  Transmission Date: 20210717
  Serious: Yes (Other)
  Sender: FDA-Public Use
  Company Number: IT-SA-2021SA160670

PATIENT
  Age: 36 Year
  Sex: Male

DRUGS (1)
  1. ZOLPIDEM TARTRATE. [Suspect]
     Active Substance: ZOLPIDEM TARTRATE
     Dosage: 240 MG, QD

REACTIONS (9)
  - Impulsive behaviour [Recovered/Resolved]
  - Euphoric mood [Recovered/Resolved]
  - Drug dependence [Recovered/Resolved]
  - Drug abuse [Recovered/Resolved]
  - Sexual inhibition [Recovered/Resolved]
  - Logorrhoea [Recovered/Resolved]
  - Alcohol poisoning [Recovered/Resolved]
  - Aggression [Recovered/Resolved]
  - Labelled drug-food interaction medication error [Recovered/Resolved]
